FAERS Safety Report 23657620 (Version 1)
Quarter: 2024Q1

REPORT INFORMATION
  Report Type: Spontaneous
  Country: US (occurrence: None)
  Receive Date: 20240320
  Receipt Date: 20240320
  Transmission Date: 20240410
  Serious: No
  Sender: FDA-Public Use
  Company Number: None

PATIENT
  Sex: Female

DRUGS (3)
  1. LENALIDOMIDE [Suspect]
     Active Substance: LENALIDOMIDE
     Dosage: FREQUENCY : DAILY;?
     Route: 048
     Dates: start: 202312
  2. IMODIUM [Concomitant]
  3. NINLARO [Concomitant]

REACTIONS (3)
  - Dehydration [None]
  - Syncope [None]
  - Diarrhoea [None]
